FAERS Safety Report 7902963-6 (Version None)
Quarter: 2011Q4

REPORT INFORMATION
  Report Type: 
  Country: None (occurrence: None)
  Receive Date: 20111107
  Receipt Date: 20111021
  Transmission Date: 20120403
  Serious: Yes (Hospitalization, Other)
  Sender: FDA-Public Use
  Company Number: 2011MA013062

PATIENT
  Age: 80 Year
  Sex: Female
  Weight: 45.2 kg

DRUGS (4)
  1. DICLOFENAC SODIUM [Suspect]
     Indication: BACK PAIN
     Dosage: 50 MG, QD, PO
     Route: 048
     Dates: start: 20020101, end: 20090601
  2. DICLOFENAC SODIUM [Suspect]
     Indication: OSTEOARTHRITIS
     Dosage: 50 MG, QD, PO
     Route: 048
     Dates: start: 20020101, end: 20090601
  3. LOXOPROFEN (LOXOPROFEN) [Suspect]
     Indication: BACK PAIN
     Dosage: 180 MG, QD, PO
     Route: 048
     Dates: start: 20020101, end: 20090601
  4. LOXOPROFEN (LOXOPROFEN) [Suspect]
     Indication: OSTEOARTHRITIS
     Dosage: 180 MG, QD, PO
     Route: 048
     Dates: start: 20020101, end: 20090601

REACTIONS (15)
  - ENTERITIS [None]
  - VOMITING [None]
  - JEJUNAL ULCER [None]
  - PLATELET COUNT DECREASED [None]
  - BLOOD ALKALINE PHOSPHATASE INCREASED [None]
  - INTESTINAL DILATATION [None]
  - HAEMOGLOBIN DECREASED [None]
  - BLOOD POTASSIUM DECREASED [None]
  - ABDOMINAL PAIN [None]
  - ILEUS [None]
  - RED BLOOD CELL COUNT DECREASED [None]
  - NAUSEA [None]
  - HAEMATOCRIT DECREASED [None]
  - BLOOD LACTATE DEHYDROGENASE INCREASED [None]
  - JEJUNAL STENOSIS [None]
